FAERS Safety Report 12219161 (Version 2)
Quarter: 2017Q2

REPORT INFORMATION
  Report Type: Spontaneous
  Country: US (occurrence: US)
  Receive Date: 20160329
  Receipt Date: 20170405
  Transmission Date: 20170830
  Serious: No
  Sender: FDA-Public Use
  Company Number: US-SA-2015SA039421

PATIENT
  Age: 77 Year
  Sex: Female

DRUGS (3)
  1. MAGNESIUM [Concomitant]
     Active Substance: MAGNESIUM
     Route: 065
  2. XARELTO [Concomitant]
     Active Substance: RIVAROXABAN
     Indication: CARDIAC DISORDER
  3. ALLEGRA [Suspect]
     Active Substance: FEXOFENADINE HYDROCHLORIDE
     Indication: MULTIPLE ALLERGIES
     Route: 048

REACTIONS (1)
  - Abdominal pain upper [Recovered/Resolved]
